FAERS Safety Report 7094319-6 (Version None)
Quarter: 2010Q4

REPORT INFORMATION
  Report Type: 
  Country: None (occurrence: None)
  Receive Date: 20101110
  Receipt Date: 20101101
  Transmission Date: 20110411
  Serious: Yes (Hospitalization)
  Sender: FDA-Public Use
  Company Number: JP-AMGEN-KDC437035

PATIENT
  Sex: Male
  Weight: 76 kg

DRUGS (16)
  1. REGPARA [Suspect]
     Indication: HYPERPARATHYROIDISM SECONDARY
     Dosage: 25 MG, QD
     Route: 048
     Dates: start: 20090731, end: 20091218
  2. RENAGEL [Concomitant]
     Dosage: 3000 MG, QD
     Route: 048
     Dates: end: 20091218
  3. FOSRENOL [Concomitant]
     Dosage: 750 MG, QD
     Route: 048
     Dates: start: 20091104, end: 20091218
  4. CALCIUM CARBONATE [Concomitant]
     Dosage: 1500 MG, QD
     Route: 048
     Dates: end: 20091218
  5. MIGLIOTOL [Concomitant]
     Dosage: 50 MG, QD
     Route: 048
     Dates: end: 20091218
  6. ADALAT CC [Concomitant]
     Dosage: 60 MG, QD
     Route: 048
     Dates: end: 20091217
  7. BLOPRESS [Concomitant]
     Dosage: 8 MG, QD
     Route: 048
     Dates: end: 20091217
  8. ASPIRIN [Concomitant]
     Dosage: 100 MG, QD
     Route: 048
     Dates: end: 20091217
  9. TAKEPRON [Concomitant]
     Dosage: 15 MG, QD
     Route: 048
     Dates: end: 20091217
  10. ALESION [Concomitant]
     Dosage: 20 MG, QD
     Route: 048
     Dates: end: 20091217
  11. LASIX [Concomitant]
     Dosage: 20 MG, QD
     Route: 048
     Dates: end: 20091217
  12. POLYFUL [Concomitant]
     Dosage: 1500 MG, QD
     Route: 048
     Dates: end: 20091217
  13. LANDSEN [Concomitant]
     Dosage: 1.5 MG, QD
     Route: 048
     Dates: end: 20091217
  14. SHAKUYAKU-KANZO-TO [Concomitant]
     Dosage: 2.5 G, 3 TIMES/WK
     Route: 048
     Dates: end: 20091217
  15. ARANESP [Concomitant]
     Dosage: 30 A?G, QWK
     Route: 042
     Dates: end: 20091217
  16. TENORMIN [Concomitant]
     Dosage: 25 MG, QD
     Route: 048
     Dates: start: 20090925, end: 20091217

REACTIONS (2)
  - ATRIAL FIBRILLATION [None]
  - GASTROINTESTINAL NECROSIS [None]
